FAERS Safety Report 4532174-6 (Version None)
Quarter: 2004Q4

REPORT INFORMATION
  Report Type: 
  Country: None (occurrence: None)
  Receive Date: 20041217
  Receipt Date: 20041209
  Transmission Date: 20050328
  Serious: Yes (Death, Other)
  Sender: FDA-Public Use
  Company Number: IT-2004-035282

PATIENT
  Age: 56 Year
  Sex: Female

DRUGS (1)
  1. ULTRAVIST 370 [Suspect]
     Indication: SCAN BRAIN
     Dosage: 80 ML, 1 DOSE, INTRAVENOUS
     Route: 042
     Dates: start: 20041117, end: 20041117

REACTIONS (3)
  - AGITATION [None]
  - DYSPNOEA [None]
  - HYPERSENSITIVITY [None]
